FAERS Safety Report 7430114-3 (Version None)
Quarter: 2011Q2

REPORT INFORMATION
  Report Type: 
  Country: None (occurrence: None)
  Receive Date: 20110421
  Receipt Date: 20110111
  Transmission Date: 20111010
  Serious: No
  Sender: FDA-Public Use
  Company Number: US-ASTRAZENECA-2011SE01774

PATIENT
  Age: 63 Year
  Sex: Female
  Weight: 49.9 kg

DRUGS (9)
  1. TOPROL-XL [Suspect]
     Indication: HYPERTENSION
     Route: 048
     Dates: start: 20100101, end: 20100101
  2. VITAMIN D [Concomitant]
  3. FOSAMAX [Concomitant]
     Indication: OSTEOPOROSIS
  4. SIMVASTATIN [Concomitant]
     Indication: HYPERCHOLESTEROLAEMIA
  5. MAGNESIUM [Concomitant]
  6. TOPROL-XL [Suspect]
     Route: 048
     Dates: start: 20100101, end: 20110101
  7. CITRACAL [Concomitant]
  8. TOPROL-XL [Suspect]
     Route: 048
     Dates: start: 20110101
  9. FEMARA [Concomitant]
     Indication: BREAST CANCER

REACTIONS (3)
  - BLOOD PRESSURE INCREASED [None]
  - DRUG INEFFECTIVE [None]
  - HEADACHE [None]
